FAERS Safety Report 14094283 (Version 1)
Quarter: 2017Q4

REPORT INFORMATION
  Report Type: Spontaneous
  Country: US (occurrence: US)
  Receive Date: 20171016
  Receipt Date: 20171016
  Transmission Date: 20180321
  Serious: No
  Sender: FDA-Public Use
  Company Number: US-SHIRE-US201719171

PATIENT
  Age: 62 Year
  Sex: Male

DRUGS (2)
  1. ARALAST NP [Suspect]
     Active Substance: .ALPHA.1-PROTEINASE INHIBITOR HUMAN
     Indication: ALPHA-1 ANTI-TRYPSIN DEFICIENCY
     Dosage: 60 MG/KG, QWK FIRST DOSE,
     Route: 042
     Dates: start: 20170711, end: 20170711
  2. ARALAST NP [Suspect]
     Active Substance: .ALPHA.1-PROTEINASE INHIBITOR HUMAN
     Dosage: 60 MG/KG, QWK FIRST DOSE,
     Route: 042
     Dates: start: 20170718, end: 20170718

REACTIONS (1)
  - Pain [Unknown]

NARRATIVE: CASE EVENT DATE: 20170718
